FAERS Safety Report 6794673-6 (Version None)
Quarter: 2010Q2

REPORT INFORMATION
  Report Type: 
  Country: None (occurrence: None)
  Receive Date: 20100624
  Receipt Date: 20100624
  Transmission Date: 20101027
  Serious: No
  Sender: FDA-Public Use
  Company Number: None

PATIENT
  Sex: Male
  Weight: 90.7194 kg

DRUGS (2)
  1. ASACOL [Suspect]
     Indication: ANORECTAL DISORDER
     Dates: start: 20081008, end: 20091201
  2. CANASA [Suspect]

REACTIONS (1)
  - DRUG INEFFECTIVE [None]
